FAERS Safety Report 4658949-0 (Version None)
Quarter: 2005Q2

REPORT INFORMATION
  Report Type: 
  Country: None (occurrence: None)
  Receive Date: 20050509
  Receipt Date: 20050419
  Transmission Date: 20051028
  Serious: Yes (Hospitalization)
  Sender: FDA-Public Use
  Company Number: FR_050105702

PATIENT
  Age: 57 Year
  Sex: Female
  Weight: 72 kg

DRUGS (9)
  1. ZYPREXA [Suspect]
     Indication: DELUSION
     Dosage: 5 MG/1 DAY
     Dates: start: 20041022, end: 20041025
  2. EFFEXOR [Concomitant]
  3. VALIUM [Concomitant]
  4. SULFARLEM (ANETHOLE TRITHIONE) [Concomitant]
  5. PHENERGAN [Concomitant]
  6. PRAVASTATIN [Concomitant]
  7. CHONDROSULF (CHONDROITIN SULFATE SODIUM) [Concomitant]
  8. CLARITIN [Concomitant]
  9. BUSPAR [Concomitant]

REACTIONS (6)
  - COUGH [None]
  - DYSPNOEA [None]
  - OXYGEN SATURATION DECREASED [None]
  - REFUSAL OF TREATMENT BY PATIENT [None]
  - RESPIRATORY FAILURE [None]
  - WHEEZING [None]
